FAERS Safety Report 7972960-3 (Version None)
Quarter: 2011Q4

REPORT INFORMATION
  Report Type: 
  Country: None (occurrence: None)
  Receive Date: 20111213
  Receipt Date: 20111207
  Transmission Date: 20120403
  Serious: Yes (Other)
  Sender: FDA-Public Use
  Company Number: CA-PFIZER INC-2011276759

PATIENT
  Age: 40 Year
  Sex: Male
  Weight: 99.773 kg

DRUGS (6)
  1. CLOBAZAM [Concomitant]
     Indication: EPILEPSY
     Dosage: 10 MG, (1 TABLET) 4X/DAY
     Route: 048
  2. DILANTIN [Concomitant]
     Indication: EPILEPSY
     Dosage: 225 MG, 1X/DAY (100 MG, 50 MG AND 75 MG TABLETS)
  3. CITALOPRAM [Concomitant]
     Indication: ANXIETY
     Dosage: 20 MG, (ONE AND A HALF TABLET) 1X/DAY
     Route: 048
  4. ATACAND [Concomitant]
     Indication: HYPERTENSION
     Dosage: 20 MG, (1 TABLET) 1X/DAY
     Route: 048
  5. ADVIL COLD AND FLU [Suspect]
     Dosage: 1 TABLET (200/30 MG), 4X/DAY
     Route: 048
     Dates: start: 20111101, end: 20111109
  6. RABEPRAZOLE SODIUM [Concomitant]
     Indication: GASTROOESOPHAGEAL REFLUX DISEASE
     Dosage: 20 MG, (1 TABLET) 1X/DAY
     Route: 048

REACTIONS (6)
  - LOSS OF CONSCIOUSNESS [None]
  - HEADACHE [None]
  - CONVULSION [None]
  - SOMNOLENCE [None]
  - ASTHENIA [None]
  - DRUG INEFFECTIVE [None]
